FAERS Safety Report 15261076 (Version 2)
Quarter: 2018Q3

REPORT INFORMATION
  Report Type: Spontaneous
  Country: HK (occurrence: HK)
  Receive Date: 20180809
  Receipt Date: 20180820
  Transmission Date: 20181010
  Serious: Yes (Life-Threatening, Hospitalization, Other)
  Sender: FDA-Public Use
  Company Number: HK-BAUSCH-BL-2018-021702

PATIENT
  Age: 49 Year
  Sex: Female

DRUGS (12)
  1. FLUOROURACIL. [Suspect]
     Active Substance: FLUOROURACIL
     Indication: COLON CANCER STAGE III
     Dosage: 30 PERCENT AT DAY 1 AND DAY 2
     Route: 040
     Dates: start: 20170104
  2. FLUOROURACIL. [Suspect]
     Active Substance: FLUOROURACIL
     Dosage: 30 PERCENT IV?INTRAVENOUS INFUSION AT 22 H AT DAY 1 AND 2
     Route: 042
     Dates: start: 20170104
  3. OXALIPLATIN. [Suspect]
     Active Substance: OXALIPLATIN
     Indication: COLON CANCER STAGE III
     Dosage: AT DAY 1
     Route: 065
     Dates: start: 20170104, end: 20170201
  4. FLUOROURACIL. [Suspect]
     Active Substance: FLUOROURACIL
     Dosage: 40 PERCENT INTRAVENOUS INFUSION AT 22 H AT DAY 1 AND 2
     Route: 042
     Dates: start: 20170118
  5. FLUOROURACIL. [Suspect]
     Active Substance: FLUOROURACIL
     Dosage: 50 PERCENT INTRAVENOUS INFUSION AT 22 H AT DAY 1 AND 2
     Route: 042
     Dates: start: 20170201
  6. FLUOROURACIL. [Suspect]
     Active Substance: FLUOROURACIL
     Dosage: 40 PERCENT
     Route: 040
     Dates: start: 20170315, end: 20170705
  7. FLUOROURACIL. [Suspect]
     Active Substance: FLUOROURACIL
     Dosage: 40 PERCENT INTRAVENOUS INFUSION
     Route: 042
     Dates: start: 20170315, end: 20170705
  8. LEUCOVORINE [Suspect]
     Active Substance: LEUCOVORIN
     Route: 065
     Dates: start: 20170315, end: 20170705
  9. FLUOROURACIL. [Suspect]
     Active Substance: FLUOROURACIL
     Dosage: 50 PERCENT AT DAY 1 AND DAY 2
     Route: 040
     Dates: start: 20170201
  10. LEUCOVORINE [Suspect]
     Active Substance: LEUCOVORIN
     Indication: COLON CANCER STAGE III
     Dosage: AT DAY 1 AND DAY 2
     Route: 065
     Dates: start: 20170104, end: 20170201
  11. FLUOROURACIL. [Suspect]
     Active Substance: FLUOROURACIL
     Dosage: 40 PERCENT AT DAY 1 AND DAY 2
     Route: 040
     Dates: start: 20170118
  12. OXALIPLATIN. [Suspect]
     Active Substance: OXALIPLATIN
     Route: 065
     Dates: start: 20170315, end: 20170705

REACTIONS (1)
  - Neutropenia [Recovered/Resolved]

NARRATIVE: CASE EVENT DATE: 20170216
